FAERS Safety Report 18287040 (Version 1)
Quarter: 2020Q3

REPORT INFORMATION
  Report Type: Spontaneous
  Country: US (occurrence: US)
  Receive Date: 20200921
  Receipt Date: 20200921
  Transmission Date: 20201103
  Serious: No
  Sender: FDA-Public Use
  Company Number: US-SHIRE-US202030496

PATIENT
  Sex: Male

DRUGS (1)
  1. VPRIV [Suspect]
     Active Substance: VELAGLUCERASE ALFA
     Indication: GAUCHER^S DISEASE TYPE I
     Dosage: UNK UNK, 1X/2WKS
     Route: 042
     Dates: start: 20200602

REACTIONS (3)
  - Fatigue [Recovering/Resolving]
  - Back pain [Unknown]
  - Condition aggravated [Unknown]
